FAERS Safety Report 9856508 (Version 1)
Quarter: 2014Q1

REPORT INFORMATION
  Report Type: Spontaneous
  Country: CH (occurrence: CH)
  Receive Date: 20140130
  Receipt Date: 20140130
  Transmission Date: 20141002
  Serious: Yes (Other)
  Sender: FDA-Public Use
  Company Number: CH-TEVA-457520ISR

PATIENT
  Sex: Male

DRUGS (2)
  1. AMLODIPIN-MEPHA [Suspect]
  2. DEPAKINE [Concomitant]

REACTIONS (5)
  - Dermatitis bullous [Not Recovered/Not Resolved]
  - Loss of consciousness [Unknown]
  - Movement disorder [Not Recovered/Not Resolved]
  - Cardiovascular disorder [Not Recovered/Not Resolved]
  - Malaise [Unknown]
